FAERS Safety Report 10696262 (Version 2)
Quarter: 2015Q1

REPORT INFORMATION
  Report Type: Report from Study
  Country: US (occurrence: US)
  Receive Date: 20150107
  Receipt Date: 20150204
  Transmission Date: 20150721
  Serious: Yes (Other)
  Sender: FDA-Public Use
  Company Number: US-SA-2014SA178865

PATIENT
  Age: 40 Year
  Sex: Female

DRUGS (1)
  1. AUBAGIO [Suspect]
     Active Substance: TERIFLUNOMIDE
     Indication: MULTIPLE SCLEROSIS
     Route: 048
     Dates: start: 20141211

REACTIONS (4)
  - Pyrexia [Recovered/Resolved]
  - Dysstasia [Unknown]
  - Menorrhagia [Unknown]
  - Mobility decreased [Unknown]

NARRATIVE: CASE EVENT DATE: 201412
